FAERS Safety Report 7562946-5 (Version None)
Quarter: 2011Q2

REPORT INFORMATION
  Report Type: 
  Country: None (occurrence: None)
  Receive Date: 20110622
  Receipt Date: 20110607
  Transmission Date: 20111010
  Serious: Yes (Life-Threatening, Hospitalization)
  Sender: FDA-Public Use
  Company Number: US-ROCHE-784404

PATIENT

DRUGS (5)
  1. METOPROLOL TARTRATE [Concomitant]
  2. GEMCITABINE [Suspect]
     Dosage: OVER 30 MIN ON DAYS 1 AND 8, CYCLE = 3 WEEKS   (MAX = 4 CYCLES)
     Route: 042
     Dates: start: 20110105
  3. BEVACIZUMAB [Suspect]
     Dosage: AFTER 4 CYCLES: OVER 30-90 MIN ON DAY 1Q 3 WKS, FOR UP TO 1 YEAR.LAST DOSE: 26 JAN 11
     Route: 042
  4. CISPLATIN [Suspect]
     Dosage: OVER 60 MIN ON DAY 1,CYCLE = 3 WEEKS   (MAX = 4 CYCLES)
     Route: 042
     Dates: start: 20110105
  5. BEVACIZUMAB [Suspect]
     Dosage: OVER 30-90 MIN ON DAY 1, CYCLE = 3 WEEKS   (MAX = 4 CYCLES)
     Route: 042
     Dates: start: 20110105

REACTIONS (3)
  - HYPERTENSION [None]
  - CONVULSION [None]
  - CEREBRAL ISCHAEMIA [None]
